FAERS Safety Report 13162084 (Version 1)
Quarter: 2017Q1

REPORT INFORMATION
  Report Type: Spontaneous
  Country: US (occurrence: US)
  Receive Date: 20170130
  Receipt Date: 20170130
  Transmission Date: 20170428
  Serious: No
  Sender: FDA-Public Use
  Company Number: US-BAYER-2017-016353

PATIENT
  Sex: Female

DRUGS (1)
  1. MIRALAX [Suspect]
     Active Substance: POLYETHYLENE GLYCOL 3350
     Indication: ABDOMINAL DISTENSION
     Dosage: 1 DF, UNK
     Route: 065

REACTIONS (3)
  - Expired product administered [None]
  - Drug ineffective for unapproved indication [Unknown]
  - Product use issue [Unknown]
